FAERS Safety Report 8319369-0 (Version None)
Quarter: 2012Q2

REPORT INFORMATION
  Report Type: 
  Country: None (occurrence: None)
  Receive Date: 20120427
  Receipt Date: 20120427
  Transmission Date: 20120825
  Serious: Yes (Hospitalization)
  Sender: FDA-Public Use
  Company Number: US-BRISTOL-MYERS SQUIBB COMPANY-16521171

PATIENT
  Age: 68 Year
  Sex: Male

DRUGS (39)
  1. IMODIUM [Concomitant]
     Dosage: 1DF = 2TABS
  2. COMPAZINE [Concomitant]
     Dosage: PRN
  3. ATENOLOL [Concomitant]
     Indication: PALPITATIONS
     Dosage: MRNG,IF NECESSARY TWO TIMES
     Route: 048
  4. ALFUZOSIN HCL [Concomitant]
     Route: 048
  5. OMEPRAZOLE [Concomitant]
     Route: 048
  6. ALPRAZOLAM [Concomitant]
     Dosage: AT BED TIME,1-2 TABS
     Route: 048
  7. AMBIEN [Concomitant]
     Dosage: 1DF= 5-15MG Q HS PRN
  8. SYNTHROID [Concomitant]
  9. ZOFRAN [Concomitant]
     Dosage: PRN
  10. CHERATUSSIN AC [Concomitant]
  11. LOPERAMIDE [Concomitant]
     Route: 048
  12. MDX-1106 [Suspect]
     Indication: NON-SMALL CELL LUNG CANCER
     Dosage: 4 CYCLE
     Dates: start: 20111219
  13. LEVOTHYROXINE SODIUM [Concomitant]
     Dosage: MRNG
     Route: 048
  14. ONDANSETRON [Concomitant]
     Dosage: TID,APPROX 3 TIMES/WK
     Route: 048
  15. CISPLATIN [Suspect]
     Indication: NON-SMALL CELL LUNG CANCER
     Dosage: 4 CYCLE
     Dates: start: 20111219
  16. XANAX [Concomitant]
     Dosage: 1DF= 0.5-1.0 MG QHS
  17. LOVENOX [Concomitant]
     Route: 058
  18. GAVISCON [Concomitant]
     Dosage: 1DF= 1-2 TBSP AC + HS PRN
  19. AVELOX [Concomitant]
     Dosage: 400MG X 10 DAYS
     Dates: start: 20120409
  20. FLECAINIDE ACETATE [Concomitant]
     Dosage: 100MG QHS;150 MG MORNING AND NOON
     Route: 048
     Dates: start: 20120301
  21. GUAIFENESIN + CODEINE [Concomitant]
     Dosage: DAILY
     Route: 048
  22. BACTRIM [Concomitant]
     Route: 048
     Dates: start: 20120411
  23. MOXIFLOXACIN [Concomitant]
     Dosage: RECEIVED 4 DOSES
     Route: 048
     Dates: start: 20120409
  24. HYOMAX-SR [Concomitant]
     Dosage: MRNG,HYOSCYAMINE XR
     Route: 048
  25. TESTOSTERONE [Concomitant]
     Dosage: GEL 2.5 GRAM MORNING, APPLIES ONE PUMP (1.25G) TO EACH ARM
     Route: 061
  26. PROCHLORPERAZINE [Concomitant]
     Dosage: Q6H,APPROX 3 TIMES/WEEK
     Route: 048
  27. ZOLPIDEM [Concomitant]
     Dosage: 5-10 MG AT BEDTIME
     Route: 048
  28. ZOLPIDEM TARTRATE [Concomitant]
     Dosage: 1 DF : 5-10MG, AT BED TIME
     Route: 048
  29. TENORMIN [Concomitant]
  30. PRILOSEC [Concomitant]
  31. PRAVACHOL [Concomitant]
     Dosage: QHS
  32. TESSALON [Concomitant]
  33. ENOXAPARIN [Concomitant]
     Route: 058
  34. GEMCITABINE [Suspect]
     Indication: NON-SMALL CELL LUNG CANCER
     Dosage: 4 CYCLE
     Dates: start: 20111219
  35. UROXATRAL [Concomitant]
     Dosage: 1DF= 1 TAB
  36. ZETIA [Concomitant]
     Dosage: 1DF= 1 TAB QHS
  37. PRAVASTATIN [Concomitant]
     Dosage: EVENING
     Route: 048
  38. EZETIMIBE [Concomitant]
     Route: 048
  39. SACCHAROMYCES BOULARDII [Concomitant]
     Dosage: MRNG
     Route: 048

REACTIONS (2)
  - PNEUMONITIS [None]
  - PNEUMONIA [None]
